FAERS Safety Report 4432577-4 (Version None)
Quarter: 2004Q3

REPORT INFORMATION
  Report Type: 
  Country: None (occurrence: None)
  Receive Date: 20040813
  Receipt Date: 20040802
  Transmission Date: 20050211
  Serious: Yes (Hospitalization)
  Sender: FDA-Public Use
  Company Number: 601453

PATIENT
  Age: 57 Year
  Sex: Male
  Weight: 58 kg

DRUGS (6)
  1. RECOMBINATE [Suspect]
     Indication: FACTOR VIII DEFICIENCY
     Dosage: 1500 IU; BID; INTRAVENOUS
     Route: 042
     Dates: start: 20040601, end: 20040722
  2. RECOMBINATE [Suspect]
  3. ORAMORPH SR [Concomitant]
  4. LISINOPRIL [Concomitant]
  5. CELEBREX [Concomitant]
  6. GASTROINTESTINAL [Concomitant]

REACTIONS (3)
  - OEDEMA PERIPHERAL [None]
  - PAIN IN EXTREMITY [None]
  - POST PROCEDURAL COMPLICATION [None]
